FAERS Safety Report 21118533 (Version 1)
Quarter: 2022Q3

REPORT INFORMATION
  Report Type: Report from Study
  Country: ES (occurrence: ES)
  Receive Date: 20220722
  Receipt Date: 20220722
  Transmission Date: 20221027
  Serious: Yes (Other)
  Sender: FDA-Public Use
  Company Number: ES-SUN PHARMACEUTICAL INDUSTRIES LTD-2022RR-345615

PATIENT
  Age: 81 Year
  Sex: Male

DRUGS (9)
  1. SONIDEGIB [Suspect]
     Active Substance: SONIDEGIB
     Indication: Basal cell carcinoma
     Dosage: 200 MILLIGRAM, DAILY
     Route: 048
     Dates: start: 20210602, end: 20211021
  2. METFORMIN HYDROCHLORIDE [Concomitant]
     Active Substance: METFORMIN HYDROCHLORIDE
     Indication: Pre-existing disease
     Dosage: 850 MILLIGRAM, BID
     Route: 048
  3. GLICLAZIDE [Concomitant]
     Active Substance: GLICLAZIDE
     Indication: Pre-existing disease
     Dosage: 30 MILLIGRAM, DAILY
     Route: 048
  4. LEVOTHYROXINE [Concomitant]
     Active Substance: LEVOTHYROXINE
     Indication: Pre-existing disease
     Dosage: 250 MICROGRAM, WEEKLY
     Route: 048
  5. AMLODIPINE [Concomitant]
     Active Substance: AMLODIPINE BESYLATE
     Indication: Pre-existing disease
     Dosage: 5 MILLIGRAM, DAILY
     Route: 048
  6. LOSARTAN [Concomitant]
     Active Substance: LOSARTAN
     Indication: Pre-existing disease
     Dosage: 50 MILLIGRAM, DAILY
     Route: 048
  7. TRIPTORELIN [Concomitant]
     Active Substance: TRIPTORELIN
     Indication: Pre-existing disease
     Dosage: 22.5 MILLIGRAM
     Route: 030
  8. OMEPRAZOLE [Concomitant]
     Active Substance: OMEPRAZOLE
     Indication: Pre-existing disease
     Dosage: 20 MILLIGRAM, DAILY
     Route: 048
  9. acetil salicilic acid [Concomitant]
     Indication: Prophylaxis
     Dosage: 100 MILLIGRAM, DAILY
     Route: 048

REACTIONS (1)
  - Basosquamous carcinoma [Not Recovered/Not Resolved]

NARRATIVE: CASE EVENT DATE: 20211021
